FAERS Safety Report 4816771-6 (Version None)
Quarter: 2005Q4

REPORT INFORMATION
  Report Type: 
  Country: None (occurrence: None)
  Receive Date: 20051028
  Receipt Date: 20051018
  Transmission Date: 20060501
  Serious: Yes (Hospitalization)
  Sender: FDA-Public Use
  Company Number: 191534

PATIENT
  Age: 73 Year
  Sex: Female

DRUGS (11)
  1. AVONEX [Suspect]
     Indication: MULTIPLE SCLEROSIS
     Dosage: 30 ; UG;QW;
     Route: 030
     Dates: start: 20031101
  2. PROZAC [Concomitant]
  3. LISINOPRIL [Concomitant]
  4. GLYBURIDE [Concomitant]
  5. PROTONIX [Concomitant]
  6. COREG [Concomitant]
  7. LIPITOR [Concomitant]
  8. BACLOFEN [Concomitant]
  9. ASPIRIN [Concomitant]
  10. COSOPT [Concomitant]
  11. XALATAN [Concomitant]

REACTIONS (1)
  - NO ADVERSE EFFECT [None]
